FAERS Safety Report 12721942 (Version 1)
Quarter: 2016Q3

REPORT INFORMATION
  Report Type: Spontaneous
  Country: GB (occurrence: GB)
  Receive Date: 20160907
  Receipt Date: 20160907
  Transmission Date: 20161109
  Serious: Yes (Other)
  Sender: FDA-Public Use
  Company Number: GB-FRESENIUS KABI-FK201606171

PATIENT
  Age: 48 Year
  Sex: Female

DRUGS (3)
  1. PACLITAXEL (MANUFACTURER UNKNOWN) [Suspect]
     Active Substance: PACLITAXEL
     Indication: LUNG NEOPLASM MALIGNANT
     Route: 065
  2. CARBOPLATIN (MANUFACTURER UNKNOWN) [Suspect]
     Active Substance: CARBOPLATIN
     Indication: LUNG NEOPLASM MALIGNANT
     Route: 065
  3. ZAPONEX [Suspect]
     Active Substance: CLOZAPINE
     Route: 048
     Dates: start: 20081203

REACTIONS (7)
  - Lung carcinoma cell type unspecified stage III [Not Recovered/Not Resolved]
  - Neutropenia [Recovered/Resolved]
  - Contraindicated product administered [Not Recovered/Not Resolved]
  - Leukopenia [Recovered/Resolved]
  - Neutrophil count decreased [Recovered/Resolved]
  - Squamous cell carcinoma [Not Recovered/Not Resolved]
  - Laryngeal cancer stage III [Not Recovered/Not Resolved]

NARRATIVE: CASE EVENT DATE: 20160629
